FAERS Safety Report 15439444 (Version 1)
Quarter: 2018Q3

REPORT INFORMATION
  Report Type: Spontaneous
  Country: DE (occurrence: DE)
  Receive Date: 20180928
  Receipt Date: 20180928
  Transmission Date: 20181010
  Serious: Yes (Hospitalization, Other)
  Sender: FDA-Public Use
  Company Number: DE-009507513-1805DEU000916

PATIENT
  Age: 13 Year
  Sex: Female
  Weight: 37.1 kg

DRUGS (15)
  1. TACROLIMUS. [Suspect]
     Active Substance: TACROLIMUS
     Indication: PROPHYLAXIS AGAINST TRANSPLANT REJECTION
  2. MYCOPHENOLATE MOFETIL. [Suspect]
     Active Substance: MYCOPHENOLATE MOFETIL
     Indication: RENAL NEOPLASM
     Dosage: 2X300 G
     Dates: start: 2007, end: 201803
  3. PREDNISONE. [Concomitant]
     Active Substance: PREDNISONE
     Indication: RENAL NEOPLASM
     Dosage: 1*4 MG
     Dates: start: 2007
  4. DARBEPOETIN ALFA [Concomitant]
     Active Substance: DARBEPOETIN ALFA
     Indication: ANAEMIA
     Dosage: 100 MICROGRAM, UNK
     Dates: start: 2016
  5. LOSARTAN. [Concomitant]
     Active Substance: LOSARTAN
     Indication: HYPERTENSION
     Dosage: 25 MG, UNK
     Dates: start: 2010
  6. REBETOL [Suspect]
     Active Substance: RIBAVIRIN
     Indication: HEPATITIS E
     Dosage: 50 MG, QD
     Route: 048
     Dates: start: 201711
  7. REBETOL [Suspect]
     Active Substance: RIBAVIRIN
     Dosage: 2 X 200 MG = 10 MG/KG OF BODY WEIGHT PER DAY
     Route: 048
  8. TACROLIMUS. [Suspect]
     Active Substance: TACROLIMUS
     Indication: IMMUNOSUPPRESSION
  9. REBETOL [Suspect]
     Active Substance: RIBAVIRIN
     Dosage: 75 MG, QD
     Route: 048
  10. REBETOL [Suspect]
     Active Substance: RIBAVIRIN
     Dosage: 50 MG, QD
     Route: 048
  11. MYCOPHENOLATE MOFETIL. [Suspect]
     Active Substance: MYCOPHENOLATE MOFETIL
     Indication: IMMUNOSUPPRESSION
  12. MYCOPHENOLATE MOFETIL. [Suspect]
     Active Substance: MYCOPHENOLATE MOFETIL
     Indication: PROPHYLAXIS AGAINST TRANSPLANT REJECTION
  13. REBETOL [Suspect]
     Active Substance: RIBAVIRIN
     Dosage: 200 MG DAILY = 5 MG/KG
     Route: 048
  14. REBETOL [Suspect]
     Active Substance: RIBAVIRIN
     Dosage: 25 MG, QD
     Route: 048
  15. TACROLIMUS. [Suspect]
     Active Substance: TACROLIMUS
     Indication: RENAL NEOPLASM
     Dosage: 2*2 MG
     Dates: start: 2007

REACTIONS (4)
  - Aplastic anaemia [Not Recovered/Not Resolved]
  - Hepatitis E [Not Recovered/Not Resolved]
  - Off label use [Unknown]
  - Intentional product use issue [Unknown]

NARRATIVE: CASE EVENT DATE: 201711
